FAERS Safety Report 5442315-4 (Version None)
Quarter: 2007Q3

REPORT INFORMATION
  Report Type: 
  Country: None (occurrence: None)
  Receive Date: 20070904
  Receipt Date: 20070710
  Transmission Date: 20080115
  Serious: Yes (Other)
  Sender: FDA-Public Use
  Company Number: FR-PFIZER INC-2007056251

PATIENT
  Sex: Male
  Weight: 30 kg

DRUGS (1)
  1. GENOTONORM [Suspect]
     Indication: GROWTH HORMONE DEFICIENCY
     Dosage: DAILY DOSE:1.4MG-FREQ:FREQUENCY: DAILY
     Route: 058

REACTIONS (2)
  - DEPRESSION [None]
  - OBSESSIVE-COMPULSIVE DISORDER [None]
